FAERS Safety Report 15956623 (Version 1)
Quarter: 2019Q1

REPORT INFORMATION
  Report Type: Report from Study
  Country: TW (occurrence: TW)
  Receive Date: 20190213
  Receipt Date: 20190213
  Transmission Date: 20190417
  Serious: Yes (Hospitalization)
  Sender: FDA-Public Use
  Company Number: TW-BAYER-2019-025400

PATIENT
  Age: 32 Year
  Sex: Male

DRUGS (1)
  1. ADEMPAS [Suspect]
     Active Substance: RIOCIGUAT
     Indication: PULMONARY ARTERIAL HYPERTENSION
     Dosage: 0.5 MG, TID
     Route: 048
     Dates: start: 20181224

REACTIONS (5)
  - Abdominal pain lower [Recovered/Resolved]
  - Vomiting [Recovered/Resolved]
  - Intestinal dilatation [Recovered/Resolved]
  - Diarrhoea [Not Recovered/Not Resolved]
  - Frequent bowel movements [None]

NARRATIVE: CASE EVENT DATE: 20190101
